FAERS Safety Report 16982906 (Version 1)
Quarter: 2019Q4

REPORT INFORMATION
  Report Type: Spontaneous
  Country: JP (occurrence: JP)
  Receive Date: 20191101
  Receipt Date: 20191101
  Transmission Date: 20200122
  Serious: Yes (Other)
  Sender: FDA-Public Use
  Company Number: JP-ROCHE-2401949

PATIENT
  Age: 71 Year
  Sex: Male

DRUGS (1)
  1. VEMURAFENIB. [Suspect]
     Active Substance: VEMURAFENIB
     Indication: BRAF V600E MUTATION POSITIVE
     Route: 065

REACTIONS (3)
  - Keratoacanthoma [Unknown]
  - Seborrhoeic keratosis [Unknown]
  - Erythema multiforme [Recovering/Resolving]
